FAERS Safety Report 9262955 (Version 1)
Quarter: 2013Q2

REPORT INFORMATION
  Report Type: Spontaneous
  Country: CA (occurrence: None)
  Receive Date: 20130422
  Receipt Date: 20130422
  Transmission Date: 20140414
  Serious: Yes (Hospitalization)
  Sender: FDA-Public Use
  Company Number: AECAN201300083

PATIENT
  Age: 67 Year
  Sex: Male
  Weight: 91 kg

DRUGS (5)
  1. GAMUNEX [Suspect]
     Indication: NEUROPATHY PERIPHERAL
     Route: 042
     Dates: start: 201104
  2. IGIVNEX [Suspect]
     Indication: NEUROPATHY PERIPHERAL
     Route: 042
     Dates: start: 201104
  3. PRIVIGEN /00025201/ [Suspect]
     Indication: NEUROPATHY PERIPHERAL
  4. SOLUMEDROL [Concomitant]
  5. BENADRYL  /00000402/ [Concomitant]

REACTIONS (6)
  - Hypertension [None]
  - Pyrexia [None]
  - Feeling abnormal [None]
  - Infusion related reaction [None]
  - Angina unstable [None]
  - Myocardial infarction [None]
